FAERS Safety Report 20689060 (Version 1)
Quarter: 2022Q2

REPORT INFORMATION
  Report Type: Report from Study
  Country: DE (occurrence: DE)
  Receive Date: 20220408
  Receipt Date: 20220408
  Transmission Date: 20220721
  Serious: Yes (Death, Hospitalization, Other)
  Sender: FDA-Public Use
  Company Number: DE-ELI_LILLY_AND_COMPANY-DE202112007409

PATIENT
  Sex: Female

DRUGS (3)
  1. GEMCITABINE HYDROCHLORIDE [Suspect]
     Active Substance: GEMCITABINE HYDROCHLORIDE
     Indication: Triple negative breast cancer
     Dosage: 1000 MG/M2, CYCLICAL
     Route: 042
  2. CARBOPLATIN [Concomitant]
     Active Substance: CARBOPLATIN
     Indication: Triple negative breast cancer
     Dosage: UNK, CYCLICAL
     Route: 042
  3. LACNOTUZUMAB [Concomitant]
     Active Substance: LACNOTUZUMAB
     Indication: Triple negative breast cancer
     Dosage: 10 MG/KG, CYCLICAL
     Route: 042

REACTIONS (12)
  - Renal failure [Fatal]
  - Infection [Not Recovered/Not Resolved]
  - Hypertensive crisis [Recovered/Resolved]
  - Blood creatine phosphokinase increased [Unknown]
  - Epistaxis [Recovered/Resolved]
  - Malignant neoplasm progression [Unknown]
  - Vomiting [Recovered/Resolved]
  - Thrombocytopenia [Unknown]
  - Nausea [Recovered/Resolved]
  - Fatigue [Recovered/Resolved]
  - Anaemia [Unknown]
  - Myelosuppression [Unknown]
